FAERS Safety Report 6634641-8 (Version None)
Quarter: 2010Q1

REPORT INFORMATION
  Report Type: 
  Country: None (occurrence: None)
  Receive Date: 20100315
  Receipt Date: 20100114
  Transmission Date: 20100710
  Serious: No
  Sender: FDA-Public Use
  Company Number: B0615347A

PATIENT
  Age: 38 Year
  Sex: Female

DRUGS (1)
  1. ALLERMIST [Suspect]
     Indication: DRUG USE FOR UNKNOWN INDICATION
     Dosage: 110MG PER DAY
     Route: 045
     Dates: start: 20091204, end: 20091204

REACTIONS (1)
  - NASAL DISCOMFORT [None]
